FAERS Safety Report 10202548 (Version 1)
Quarter: 2014Q2

REPORT INFORMATION
  Report Type: Spontaneous
  Country: US (occurrence: US)
  Receive Date: 20140528
  Receipt Date: 20140528
  Transmission Date: 20141212
  Serious: Yes (Other)
  Sender: FDA-Public Use
  Company Number: US-B.I. PHARMACEUTICALS,INC./RIDGEFIELD-2014-BI-23841GD

PATIENT
  Age: 72 Year
  Sex: Female

DRUGS (5)
  1. CLONIDINE [Suspect]
     Indication: HYPERTENSION
     Route: 065
  2. CARVEDILOL [Suspect]
     Indication: HYPERTENSION
     Route: 065
  3. NIFEDIPINE [Suspect]
     Indication: HYPERTENSION
     Route: 065
  4. DOXAZOSIN [Suspect]
     Indication: HYPERTENSION
     Route: 065
  5. FUROSEMIDE [Suspect]
     Indication: HYPERTENSION
     Route: 065

REACTIONS (2)
  - Labile blood pressure [Unknown]
  - Inappropriate schedule of drug administration [Unknown]
